FAERS Safety Report 15104649 (Version 1)
Quarter: 2018Q3

REPORT INFORMATION
  Report Type: Spontaneous
  Country: PL (occurrence: PL)
  Receive Date: 20180703
  Receipt Date: 20180703
  Transmission Date: 20181010
  Serious: Yes (Hospitalization)
  Sender: FDA-Public Use
  Company Number: PHHY2018PL025106

PATIENT
  Age: 70 Year
  Sex: Female

DRUGS (5)
  1. FORSTEO [Concomitant]
     Active Substance: TERIPARATIDE
     Indication: PRODUCT USED FOR UNKNOWN INDICATION
     Route: 065
     Dates: start: 201710
  2. MAGNESIUM [Concomitant]
     Active Substance: MAGNESIUM
     Indication: PRODUCT USED FOR UNKNOWN INDICATION
     Route: 065
  3. VITAMIN D [Concomitant]
     Active Substance: CHOLECALCIFEROL
     Indication: PRODUCT USED FOR UNKNOWN INDICATION
     Route: 065
  4. ACLASTA [Suspect]
     Active Substance: ZOLEDRONIC ACID
     Indication: PRODUCT USED FOR UNKNOWN INDICATION
     Route: 065
     Dates: start: 20180611
  5. CALCIUM [Concomitant]
     Active Substance: CALCIUM
     Indication: PRODUCT USED FOR UNKNOWN INDICATION
     Route: 065

REACTIONS (18)
  - Facial paresis [Not Recovered/Not Resolved]
  - Conjunctivitis [Unknown]
  - Headache [Unknown]
  - Head injury [Unknown]
  - Chills [Unknown]
  - Skin discolouration [Unknown]
  - Myalgia [Unknown]
  - Pyrexia [Unknown]
  - Hypercholesterolaemia [Unknown]
  - Eye pain [Unknown]
  - Arthralgia [Unknown]
  - Bone pain [Unknown]
  - Vomiting [Unknown]
  - Facial asymmetry [Unknown]
  - Joint swelling [Unknown]
  - Cerebrovascular accident [Unknown]
  - Eye inflammation [Unknown]
  - Hypoaesthesia [Unknown]

NARRATIVE: CASE EVENT DATE: 20180613
